FAERS Safety Report 5978702-5 (Version None)
Quarter: 2008Q4

REPORT INFORMATION
  Report Type: 
  Country: None (occurrence: None)
  Receive Date: 20081204
  Receipt Date: 20081125
  Transmission Date: 20090506
  Serious: Yes (Hospitalization)
  Sender: FDA-Public Use
  Company Number: GB-ROCHE-599527

PATIENT
  Sex: Female
  Weight: 113.7 kg

DRUGS (3)
  1. ORLISTAT [Suspect]
     Indication: OBESITY
     Route: 048
     Dates: start: 20080821, end: 20081115
  2. PROPRANOLOL [Concomitant]
     Indication: TACHYCARDIA
     Dosage: DRUG REPORTED AS PROPANOLOL.
     Route: 048
  3. ACETAMINOPHEN W/ CODEINE [Concomitant]
     Route: 048

REACTIONS (1)
  - PAIN [None]
